FAERS Safety Report 16344771 (Version 1)
Quarter: 2019Q2

REPORT INFORMATION
  Report Type: Spontaneous
  Country: US (occurrence: US)
  Receive Date: 20190522
  Receipt Date: 20190522
  Transmission Date: 20190711
  Serious: No
  Sender: FDA-Public Use
  Company Number: US-SAGENT PHARMACEUTICALS-2018SAG001633

PATIENT

DRUGS (1)
  1. OXACILLIN SODIUM [Suspect]
     Active Substance: OXACILLIN SODIUM
     Indication: OSTEOMYELITIS BACTERIAL
     Dosage: UNK, QD
     Route: 042
     Dates: start: 20180727

REACTIONS (1)
  - Medical device site discolouration [Unknown]

NARRATIVE: CASE EVENT DATE: 201808
